FAERS Safety Report 10266016 (Version 6)
Quarter: 2017Q1

REPORT INFORMATION
  Report Type: Report from Study
  Country: US (occurrence: US)
  Receive Date: 20140627
  Receipt Date: 20170123
  Transmission Date: 20170428
  Serious: Yes (Life-Threatening, Hospitalization)
  Sender: FDA-Public Use
  Company Number: PHHO2014US005749

PATIENT
  Age: 61 Year
  Sex: Male

DRUGS (17)
  1. CLOPIDOGREL [Concomitant]
     Active Substance: CLOPIDOGREL BISULFATE
     Indication: PROPHYLAXIS
     Dosage: 75 MG, QD
     Route: 065
     Dates: start: 20130911
  2. ISOSORBIDE MONONITRATE. [Concomitant]
     Active Substance: ISOSORBIDE MONONITRATE
     Indication: HYPERTENSION
     Dosage: 30 MG, QD
     Route: 065
     Dates: start: 20130911, end: 20140618
  3. LISINOPRIL. [Suspect]
     Active Substance: LISINOPRIL
     Indication: HYPERTENSION
     Dosage: 20 MG, QD
     Route: 065
     Dates: start: 20130911, end: 20140618
  4. BLINDED ACZ885 [Suspect]
     Active Substance: CANAKINUMAB
     Indication: CARDIOVASCULAR EVENT PROPHYLAXIS
     Dosage: DOUBLE BLINDED
     Route: 058
     Dates: start: 20131021, end: 20140626
  5. ISOSORBIDE MONONITRATE. [Concomitant]
     Active Substance: ISOSORBIDE MONONITRATE
     Dosage: UNK
     Route: 065
     Dates: start: 20140708
  6. BLINDED PLACEBO [Suspect]
     Active Substance: INVESTIGATIONAL PRODUCT
     Indication: CARDIOVASCULAR EVENT PROPHYLAXIS
     Dosage: DOUBLE BLINDED
     Route: 058
     Dates: start: 20131021, end: 20140626
  7. SIMVASTATIN. [Concomitant]
     Active Substance: SIMVASTATIN
     Indication: HYPERLIPIDAEMIA
     Dosage: 20 MG, QD
     Route: 065
     Dates: start: 20130911
  8. FUROSEMIDE. [Suspect]
     Active Substance: FUROSEMIDE
     Indication: PROPHYLAXIS
     Dosage: 20 MG, QD
     Route: 065
     Dates: start: 20130911, end: 20140618
  9. BLINDED NO TREATMENT RECEIVED [Suspect]
     Active Substance: INVESTIGATIONAL PRODUCT
     Indication: CARDIOVASCULAR EVENT PROPHYLAXIS
     Dosage: DOUBLE BLINDED
     Route: 058
     Dates: start: 20131021, end: 20140626
  10. CARVEDILOL. [Concomitant]
     Active Substance: CARVEDILOL
     Indication: HYPERTENSION
     Dosage: 12.5 MG, BID
     Route: 065
     Dates: start: 20130911, end: 20140618
  11. ALPRAZOLAM. [Concomitant]
     Active Substance: ALPRAZOLAM
     Indication: ANXIETY
     Dosage: 1.25 MG, PRN
     Route: 065
     Dates: start: 20140605
  12. SPIRONOLACTONE. [Suspect]
     Active Substance: SPIRONOLACTONE
     Indication: PROPHYLAXIS
     Dosage: 25 MG, BID
     Route: 065
     Dates: end: 20140618
  13. BLINDED ACZ885 [Suspect]
     Active Substance: CANAKINUMAB
     Indication: CARDIOVASCULAR EVENT PROPHYLAXIS
     Dosage: DOUBLE BLINDED
     Route: 058
     Dates: start: 20131021, end: 20140626
  14. POTASSIUM SORBATE [Concomitant]
     Active Substance: POTASSIUM SORBATE
     Indication: SUPPLEMENTATION THERAPY
     Dosage: 20 MG, QD
     Route: 065
     Dates: start: 20140417
  15. LISINOPRIL. [Suspect]
     Active Substance: LISINOPRIL
     Dosage: UNK
     Route: 065
     Dates: start: 20140619
  16. LASIX [Suspect]
     Active Substance: FUROSEMIDE
     Indication: PRODUCT USED FOR UNKNOWN INDICATION
     Route: 065
  17. ASPIRIN. [Concomitant]
     Active Substance: ASPIRIN
     Indication: PROPHYLAXIS
     Dosage: 325 MG, QD
     Route: 065
     Dates: start: 20130911, end: 20140618

REACTIONS (3)
  - Chest pain [Recovered/Resolved]
  - Cardiac failure congestive [Not Recovered/Not Resolved]
  - Dehydration [Recovered/Resolved]

NARRATIVE: CASE EVENT DATE: 20140321
